FAERS Safety Report 14381053 (Version 3)
Quarter: 2018Q1

REPORT INFORMATION
  Report Type: Spontaneous
  Country: US (occurrence: US)
  Receive Date: 20180112
  Receipt Date: 20180201
  Transmission Date: 20180509
  Serious: No
  Sender: FDA-Public Use
  Company Number: US-BAYER-2018-006098

PATIENT
  Age: 25 Year
  Sex: Female

DRUGS (3)
  1. BETADINE [Concomitant]
     Active Substance: POVIDONE-IODINE
     Indication: INFECTION PROPHYLAXIS
     Dosage: UNK
     Route: 061
     Dates: start: 20171030, end: 20171030
  2. KYLEENA [Suspect]
     Active Substance: LEVONORGESTREL
     Indication: CONTRACEPTION
     Dosage: 17.5 MCG/24HR, CONT
     Route: 015
     Dates: start: 20171030
  3. ORTHO TRI CYCLEN [Concomitant]
     Active Substance: ETHINYL ESTRADIOL\NORGESTIMATE
     Dosage: 1 DF, QD
     Route: 048
     Dates: end: 2017

REACTIONS (17)
  - Hormone level abnormal [None]
  - Discomfort [Not Recovered/Not Resolved]
  - Vulvovaginal pruritus [None]
  - Emotional disorder [None]
  - Seborrhoea [None]
  - Pruritus generalised [Not Recovered/Not Resolved]
  - Pain [None]
  - Menorrhagia [Not Recovered/Not Resolved]
  - Vulvovaginal mycotic infection [None]
  - Pelvic pain [None]
  - Dermatitis allergic [Not Recovered/Not Resolved]
  - Somnolence [None]
  - Rash generalised [None]
  - Abdominal pain lower [Not Recovered/Not Resolved]
  - Acne [Not Recovered/Not Resolved]
  - Pain of skin [Not Recovered/Not Resolved]
  - Procedural pain [None]

NARRATIVE: CASE EVENT DATE: 2017
